FAERS Safety Report 4302785-1 (Version None)
Quarter: 2004Q1

REPORT INFORMATION
  Report Type: 
  Country: None (occurrence: None)
  Receive Date: 20040224
  Receipt Date: 20040213
  Transmission Date: 20041129
  Serious: Yes (Hospitalization)
  Sender: FDA-Public Use
  Company Number: PHBS2004CH02111

PATIENT
  Age: 48 Year
  Sex: Female

DRUGS (10)
  1. NEORAL [Suspect]
     Indication: RENAL TRANSPLANT
     Dosage: 100 MG/D
  2. PLENDIL [Suspect]
     Dosage: 5 MG/D
  3. SORTIS ^PARKE DAVIS^ [Suspect]
     Indication: HYPERLIPIDAEMIA
     Dosage: 40 MG/D
     Dates: start: 20040108, end: 20040122
  4. PREDNISONE [Suspect]
     Dosage: 10 MG/D
  5. CELLCEPT [Concomitant]
     Dosage: 2 G/D
  6. TOREM [Concomitant]
     Dosage: 10 MG/D
  7. LOPRESOR - SLOW RELEASE [Concomitant]
     Dosage: 200 MG/D
  8. ARANESP [Concomitant]
     Dosage: 60 MG, QW
     Route: 058
  9. CALCIUM ACETATE [Concomitant]
     Dosage: 3 G/D
  10. ZYRTEC [Concomitant]
     Indication: PRURITUS

REACTIONS (8)
  - AZOTAEMIA [None]
  - DRUG INTERACTION [None]
  - HYPERKALAEMIA [None]
  - HYPERLIPIDAEMIA [None]
  - HYPERPARATHYROIDISM SECONDARY [None]
  - PRURITUS [None]
  - RENAL FAILURE [None]
  - RHABDOMYOLYSIS [None]
